FAERS Safety Report 12195336 (Version 7)
Quarter: 2016Q2

REPORT INFORMATION
  Report Type: Spontaneous
  Country: US (occurrence: US)
  Receive Date: 20160321
  Receipt Date: 20160620
  Transmission Date: 20160815
  Serious: Yes (Other)
  Sender: FDA-Public Use
  Company Number: US-ACTELION PHARMACEUTICALS US, INC.-A-US2016-133214

PATIENT
  Age: 72 Year
  Sex: Male

DRUGS (7)
  1. VENTAVIS [Suspect]
     Active Substance: ILOPROST
     Indication: PULMONARY ARTERIAL HYPERTENSION
     Dosage: 5 MCG, 6 TO 9 X/DAY
     Route: 055
     Dates: start: 20160318, end: 20160318
  2. LOSARTIN [Concomitant]
     Active Substance: LOSARTAN
     Dosage: 56 UNITS IN AM, 40 Q, 7M
     Dates: start: 20160301
  3. TRACLEER [Suspect]
     Active Substance: BOSENTAN
     Indication: PULMONARY ARTERIAL HYPERTENSION
     Dosage: UNK MCG, UNK
     Route: 048
  4. ZAROXOLYN [Concomitant]
     Active Substance: METOLAZONE
     Dosage: 5 MG, QD
     Dates: start: 20151102
  5. DEMADEX [Concomitant]
     Active Substance: TORSEMIDE
     Dosage: 100 MG, QD
     Dates: start: 20151204
  6. COREG [Concomitant]
     Active Substance: CARVEDILOL
     Dosage: 25 MG, BID
     Dates: start: 20151204
  7. METFORMIN [Concomitant]
     Active Substance: METFORMIN HYDROCHLORIDE
     Dosage: 1 G, BID
     Dates: start: 20150102

REACTIONS (15)
  - Hyperphagia [Unknown]
  - Cough [Unknown]
  - Malaise [Unknown]
  - Blood glucose increased [Recovering/Resolving]
  - Rectal haemorrhage [Recovering/Resolving]
  - Pain [Unknown]
  - Fatigue [Unknown]
  - Hyperglycaemia [Unknown]
  - Dyspnoea [Unknown]
  - Heart rate increased [Unknown]
  - Hypotension [Recovering/Resolving]
  - Swelling face [Unknown]
  - Nausea [Unknown]
  - Flushing [Unknown]
  - Constipation [Unknown]

NARRATIVE: CASE EVENT DATE: 20160508
